FAERS Safety Report 17289995 (Version 1)
Quarter: 2020Q1

REPORT INFORMATION
  Report Type: Spontaneous
  Country: US (occurrence: US)
  Receive Date: 20200120
  Receipt Date: 20200120
  Transmission Date: 20200409
  Serious: No
  Sender: FDA-Public Use
  Company Number: US-TARO-2019TAR00360

PATIENT
  Age: 41 Year
  Sex: Female
  Weight: 41.27 kg

DRUGS (2)
  1. MOMETASONE FUROATE CREAM USP 0.1% [Suspect]
     Active Substance: MOMETASONE FUROATE
     Indication: RASH
     Dosage: A THIN LAYER, 1X/DAY AT NIGHT
     Route: 061
     Dates: start: 20190301, end: 20190307
  2. MULTIVITAMIN [Concomitant]
     Active Substance: VITAMINS

REACTIONS (7)
  - Dry skin [Not Recovered/Not Resolved]
  - Skin exfoliation [Not Recovered/Not Resolved]
  - Weight decreased [Not Recovered/Not Resolved]
  - Drug ineffective [Recovered/Resolved]
  - Rash erythematous [Not Recovered/Not Resolved]
  - Application site pain [Not Recovered/Not Resolved]
  - Skin disorder [Not Recovered/Not Resolved]

NARRATIVE: CASE EVENT DATE: 2019
